FAERS Safety Report 24524139 (Version 2)
Quarter: 2024Q4

REPORT INFORMATION
  Report Type: Spontaneous
  Country: US (occurrence: US)
  Receive Date: 20241018
  Receipt Date: 20241210
  Transmission Date: 20250115
  Serious: No
  Sender: SANOFI AVENTIS
  Company Number: US-SA-2024SA299090

PATIENT
  Age: 22 Year
  Sex: Female

DRUGS (1)
  1. DUPIXENT [Suspect]
     Active Substance: DUPILUMAB
     Indication: Dermatitis atopic
     Dosage: 600 MG, 1X
     Route: 058
     Dates: start: 20241010, end: 20241010

REACTIONS (4)
  - Injection site urticaria [Unknown]
  - Erythema [Recovered/Resolved]
  - Dizziness [Recovering/Resolving]
  - Injection site pruritus [Unknown]

NARRATIVE: CASE EVENT DATE: 20240101
